FAERS Safety Report 4492536-2 (Version None)
Quarter: 2004Q4

REPORT INFORMATION
  Report Type: 
  Country: None (occurrence: None)
  Receive Date: 20041029
  Receipt Date: 20041020
  Transmission Date: 20050328
  Serious: Yes (Hospitalization)
  Sender: FDA-Public Use
  Company Number: 2004CG02132

PATIENT
  Age: 25 Year
  Sex: Female

DRUGS (3)
  1. OMEPRAZOLE [Suspect]
     Indication: GASTRITIS
     Dosage: 20 MG DAILY
     Dates: start: 20031020, end: 20031121
  2. OMEPRAZOLE [Suspect]
     Indication: GASTRODUODENITIS
     Dosage: 20 MG DAILY
     Dates: start: 20031020, end: 20031121
  3. BUTAZOLIDIN [Suspect]
     Indication: PSORIATIC ARTHROPATHY
     Dosage: 6 DF DAILY PO
     Route: 048
     Dates: start: 20031020, end: 20031121

REACTIONS (18)
  - CHEILITIS [None]
  - DERMATITIS EXFOLIATIVE [None]
  - DISSEMINATED INTRAVASCULAR COAGULATION [None]
  - DRUG HYPERSENSITIVITY [None]
  - EOSINOPHIL COUNT INCREASED [None]
  - ERYTHEMA [None]
  - FACE OEDEMA [None]
  - GENERAL PHYSICAL HEALTH DETERIORATION [None]
  - HEPATITIS [None]
  - LYMPHADENOPATHY [None]
  - LYMPHOCYTE COUNT INCREASED [None]
  - LYMPHOCYTE MORPHOLOGY ABNORMAL [None]
  - MONOCYTE COUNT INCREASED [None]
  - NEUTROPHIL COUNT INCREASED [None]
  - OEDEMA PERIPHERAL [None]
  - ORAL MUCOSAL DISORDER [None]
  - PLEURAL EFFUSION [None]
  - WHITE BLOOD CELL COUNT INCREASED [None]
